FAERS Safety Report 18449383 (Version 1)
Quarter: 2020Q4

REPORT INFORMATION
  Report Type: Report from Study
  Country: AR (occurrence: AR)
  Receive Date: 20201030
  Receipt Date: 20201030
  Transmission Date: 20210114
  Serious: Yes (Other)
  Sender: FDA-Public Use
  Company Number: AR-PFIZER INC-2020419123

PATIENT
  Age: 43 Year
  Sex: Male

DRUGS (11)
  1. ANTITHYMOCYTE IMMUNOGLOBULIN [Suspect]
     Active Substance: THYMOCYTE IMMUNE GLOBULIN NOS
     Indication: IMMUNOSUPPRESSION
     Dosage: UNK(2-5 MG/KG FOR 5 TO 7 DOSES)
  2. MEPREDNISONE [Suspect]
     Active Substance: MEPREDNISONE
     Dosage: 4 MG, DAILY
     Route: 048
  3. METHYLPREDNISOLONE SODIUM SUCCINATE. [Suspect]
     Active Substance: METHYLPREDNISOLONE SODIUM SUCCINATE
     Dosage: 250 MG(POD1 )
  4. BELATACEPT [Suspect]
     Active Substance: BELATACEPT
     Dosage: 5 MG/KG( EVERY 28 DAYS)
     Route: 042
  5. MEPREDNISONE [Suspect]
     Active Substance: MEPREDNISONE
     Dosage: 10 MG, DAILY(WEEK 7- MONTH 6)
     Route: 048
  6. METHYLPREDNISOLONE SODIUM SUCCINATE. [Suspect]
     Active Substance: METHYLPREDNISOLONE SODIUM SUCCINATE
     Dosage: 125 MG(POD 2)
  7. MEPREDNISONE [Suspect]
     Active Substance: MEPREDNISONE
     Indication: IMMUNOSUPPRESSION
     Dosage: 20 MG, DAILY(MONTH 1)
     Route: 048
  8. MEPREDNISONE [Suspect]
     Active Substance: MEPREDNISONE
     Dosage: 15 MG, DAILY(WEEKS 5-6)
     Route: 048
  9. METHYLPREDNISOLONE SODIUM SUCCINATE. [Suspect]
     Active Substance: METHYLPREDNISOLONE SODIUM SUCCINATE
     Indication: IMMUNOSUPPRESSION
     Dosage: 500 MG(PERIOPERATIVELY)
  10. MYFORTIC [Suspect]
     Active Substance: MYCOPHENOLATE SODIUM
     Indication: IMMUNOSUPPRESSION
     Dosage: 720 MG, 2X/DAY
  11. BELATACEPT [Suspect]
     Active Substance: BELATACEPT
     Indication: IMMUNOSUPPRESSION
     Dosage: 10 MG/KG(POD 1,5,15,28,56 AND 84)
     Route: 042

REACTIONS (1)
  - American trypanosomiasis [Recovered/Resolved]
